FAERS Safety Report 18973365 (Version 1)
Quarter: 2021Q1

REPORT INFORMATION
  Report Type: Spontaneous
  Country: US (occurrence: US)
  Receive Date: 20210305
  Receipt Date: 20210305
  Transmission Date: 20210420
  Serious: No
  Sender: FDA-Public Use
  Company Number: US-SA-2021SA072325

PATIENT
  Age: 54 Year
  Sex: Female

DRUGS (1)
  1. DUPIXENT [Suspect]
     Active Substance: DUPILUMAB
     Indication: NASAL POLYPS

REACTIONS (7)
  - Nasal congestion [Unknown]
  - Anosmia [Unknown]
  - Asthma [Unknown]
  - Dyspnoea [Unknown]
  - Rhinorrhoea [Unknown]
  - Sleep disorder [Unknown]
  - Upper-airway cough syndrome [Unknown]
